FAERS Safety Report 7407610-8 (Version None)
Quarter: 2011Q2

REPORT INFORMATION
  Report Type: 
  Country: None (occurrence: None)
  Receive Date: 20110404
  Receipt Date: 20110318
  Transmission Date: 20111010
  Serious: Yes (Other)
  Sender: FDA-Public Use
  Company Number: 029636

PATIENT
  Age: 69 Year
  Sex: Female
  Weight: 67.2 kg

DRUGS (1)
  1. CIMZIA [Suspect]
     Indication: RHEUMATOID ARTHRITIS
     Dosage: SUBCUTANEOUS
     Route: 058
     Dates: start: 20110112

REACTIONS (3)
  - HEADACHE [None]
  - MUSCLE SPASMS [None]
  - STRESS [None]
